FAERS Safety Report 4398257-9 (Version None)
Quarter: 2004Q3

REPORT INFORMATION
  Report Type: 
  Country: None (occurrence: None)
  Receive Date: 20040713
  Receipt Date: 20040706
  Transmission Date: 20050211
  Serious: Yes (Hospitalization)
  Sender: FDA-Public Use
  Company Number: 206963

PATIENT
  Age: 35 Year
  Sex: Male

DRUGS (5)
  1. EFALIZUMAB (EFALIZUMAB) PWDR [Suspect]
     Indication: PSORIASIS
     Dosage: 1 MG/KG, 1/WEEK,SUBCUTANEOUS
     Route: 058
     Dates: start: 20031208, end: 20040223
  2. AMISULPRIDE (AMISULPRIDE) [Concomitant]
  3. FLUOXETINE [Concomitant]
  4. OXAZEPAM [Concomitant]
  5. CANNABIS (CANNABIS) [Concomitant]

REACTIONS (4)
  - DISEASE RECURRENCE [None]
  - DRUG ABUSER [None]
  - PANCREATITIS [None]
  - PSORIASIS [None]
